FAERS Safety Report 24857702 (Version 1)
Quarter: 2025Q1

REPORT INFORMATION
  Report Type: Spontaneous
  Country: MY (occurrence: MY)
  Receive Date: 20250117
  Receipt Date: 20250117
  Transmission Date: 20250409
  Serious: Yes (Other)
  Sender: PFIZER
  Company Number: MY-PFIZER INC-202500008451

PATIENT
  Age: 70 Year
  Sex: Male

DRUGS (1)
  1. SUTENT [Suspect]
     Active Substance: SUNITINIB MALATE
     Indication: Renal cell carcinoma
     Dosage: 37.5 MG, 1X/DAY
     Route: 048

REACTIONS (3)
  - Stasis dermatitis [Recovering/Resolving]
  - Oedema peripheral [Recovering/Resolving]
  - Blister [Recovering/Resolving]
